FAERS Safety Report 8201063-8 (Version None)
Quarter: 2012Q1

REPORT INFORMATION
  Report Type: 
  Country: None (occurrence: None)
  Receive Date: 20120312
  Receipt Date: 20120213
  Transmission Date: 20120608
  Serious: No
  Sender: FDA-Public Use
  Company Number: US-ABBOTT-12P-163-0900176-00

PATIENT
  Sex: Female
  Weight: 62.198 kg

DRUGS (6)
  1. MULTI-VITAMIN [Concomitant]
     Indication: ROUTINE HEALTH MAINTENANCE
  2. VITAMIN E [Concomitant]
     Indication: ROUTINE HEALTH MAINTENANCE
  3. LUPRON DEPOT [Suspect]
     Indication: ENDOMETRIOSIS
     Dates: start: 20120126
  4. ASCORBIC ACID [Concomitant]
     Indication: ROUTINE HEALTH MAINTENANCE
  5. FISH OIL [Concomitant]
     Indication: ROUTINE HEALTH MAINTENANCE
  6. NORETHINDRONE ACETATE [Concomitant]
     Indication: ENDOMETRIOSIS
     Dates: start: 20120126

REACTIONS (3)
  - PERIPHERAL COLDNESS [None]
  - HEADACHE [None]
  - NAUSEA [None]
